FAERS Safety Report 7767470-2 (Version None)
Quarter: 2011Q3

REPORT INFORMATION
  Report Type: 
  Country: None (occurrence: None)
  Receive Date: 20110922
  Receipt Date: 20110912
  Transmission Date: 20111222
  Serious: Yes (Hospitalization)
  Sender: FDA-Public Use
  Company Number: GB-BAYER-2011-076582

PATIENT
  Age: 28 Year
  Sex: Female
  Weight: 63 kg

DRUGS (1)
  1. MIRENA [Suspect]
     Indication: CONTRACEPTION
     Dosage: 20 MCG/24HR, CONT
     Route: 015
     Dates: start: 20110624

REACTIONS (5)
  - PELVIC INFLAMMATORY DISEASE [None]
  - VAGINAL DISCHARGE [None]
  - BETA HAEMOLYTIC STREPTOCOCCAL INFECTION [None]
  - PELVIC PAIN [None]
  - PYREXIA [None]
